FAERS Safety Report 11721392 (Version 1)
Quarter: 2015Q4

REPORT INFORMATION
  Report Type: Spontaneous
  Country: IN (occurrence: IN)
  Receive Date: 20151111
  Receipt Date: 20151111
  Transmission Date: 20160304
  Serious: Yes (Other)
  Sender: FDA-Public Use
  Company Number: IN-ASPEN PHARMA TRADING LIMITED US-AG-2015-009392

PATIENT
  Age: 65 Year
  Sex: Female

DRUGS (1)
  1. CHLORAMBUCIL [Suspect]
     Active Substance: CHLORAMBUCIL
     Indication: CHRONIC LYMPHOCYTIC LEUKAEMIA
     Route: 065

REACTIONS (4)
  - Anaemia [Unknown]
  - Fungal skin infection [Unknown]
  - Diabetes mellitus [Unknown]
  - Treatment noncompliance [Unknown]
